FAERS Safety Report 8367711-7 (Version None)
Quarter: 2012Q2

REPORT INFORMATION
  Report Type: 
  Country: None (occurrence: None)
  Receive Date: 20120517
  Receipt Date: 20120514
  Transmission Date: 20120825
  Serious: Yes (Hospitalization)
  Sender: FDA-Public Use
  Company Number: US-GLAXOSMITHKLINE-A0936007A

PATIENT
  Age: 39 Year
  Sex: Female

DRUGS (1)
  1. AVANDIA [Suspect]
     Indication: DIABETES MELLITUS
     Route: 048
     Dates: start: 19990101, end: 20000101

REACTIONS (9)
  - MULTIPLE FRACTURES [None]
  - MACULAR OEDEMA [None]
  - CARDIAC FAILURE CONGESTIVE [None]
  - COMA [None]
  - BLINDNESS [None]
  - CORONARY ARTERY DISEASE [None]
  - MYOCARDIAL INFARCTION [None]
  - NEOPLASM [None]
  - ORTHOSTATIC HYPERTENSION [None]
